FAERS Safety Report 18427317 (Version 1)
Quarter: 2020Q4

REPORT INFORMATION
  Report Type: Spontaneous
  Country: US (occurrence: US)
  Receive Date: 20201026
  Receipt Date: 20201026
  Transmission Date: 20210114
  Serious: No
  Sender: FDA-Public Use
  Company Number: US-ASTRAZENECA-2020SF30688

PATIENT
  Sex: Female

DRUGS (1)
  1. NEXIUM [Suspect]
     Active Substance: ESOMEPRAZOLE MAGNESIUM
     Indication: IMPAIRED GASTRIC EMPTYING
     Dosage: 20.0MG UNKNOWN
     Route: 048

REACTIONS (6)
  - Intentional product misuse [Unknown]
  - Lethargy [Unknown]
  - Illness [Unknown]
  - Insomnia [Unknown]
  - Disturbance in attention [Unknown]
  - Abdominal discomfort [Unknown]
